FAERS Safety Report 24271064 (Version 1)
Quarter: 2024Q3

REPORT INFORMATION
  Report Type: Spontaneous
  Country: US (occurrence: US)
  Receive Date: 20240831
  Receipt Date: 20240831
  Transmission Date: 20241017
  Serious: No
  Sender: BAXTER
  Company Number: US-BAXTER-2024BAX023638

PATIENT

DRUGS (2)
  1. VANCOMYCIN [Suspect]
     Active Substance: VANCOMYCIN
     Dosage: UNK
     Route: 065
  2. METRONIDAZOLE [Suspect]
     Active Substance: METRONIDAZOLE
     Dosage: (METRONIDAZOLE INJ 500 MG/100 ML VIAFLEX) AT AN UNSPECIFIED DOSE AND FREQUENCY
     Route: 065

REACTIONS (1)
  - Therapy non-responder [Unknown]
